FAERS Safety Report 12233828 (Version 1)
Quarter: 2016Q2

REPORT INFORMATION
  Report Type: Spontaneous
  Country: US (occurrence: US)
  Receive Date: 20160404
  Receipt Date: 20160404
  Transmission Date: 20160815
  Serious: Yes (Other)
  Sender: FDA-Public Use
  Company Number: US-AUROBINDO-AUR-APL-2016-04107

PATIENT
  Age: 2 Year
  Sex: Female

DRUGS (1)
  1. ONDANSETRON HYDROCHLORIDE TABLETS 8 MG [Suspect]
     Active Substance: ONDANSETRON HYDROCHLORIDE
     Indication: PRODUCT USED FOR UNKNOWN INDICATION
     Dosage: 58 (36 MG/KG)
     Route: 048

REACTIONS (13)
  - Myoclonus [Recovered/Resolved]
  - Somnolence [Recovered/Resolved]
  - Nystagmus [Recovered/Resolved]
  - Hypotension [Recovered/Resolved]
  - Condition aggravated [Recovered/Resolved]
  - Gait disturbance [Recovered/Resolved]
  - Respiratory failure [Recovered/Resolved]
  - Depressed level of consciousness [Recovered/Resolved]
  - Overdose [Recovered/Resolved]
  - Sinus tachycardia [Recovered/Resolved]
  - Tremor [Recovered/Resolved]
  - Vomiting [Recovered/Resolved]
  - Electrocardiogram QT prolonged [Recovered/Resolved]
